FAERS Safety Report 24730070 (Version 1)
Quarter: 2024Q4

REPORT INFORMATION
  Report Type: Spontaneous
  Country: TR (occurrence: TR)
  Receive Date: 20241213
  Receipt Date: 20241213
  Transmission Date: 20250114
  Serious: Yes (Hospitalization)
  Sender: ROCHE
  Company Number: TR-ROCHE-10000151156

PATIENT
  Age: 56 Year
  Sex: Female

DRUGS (3)
  1. TOCILIZUMAB [Interacting]
     Active Substance: TOCILIZUMAB
     Indication: Rheumatoid arthritis
     Route: 042
  2. WARFARIN SODIUM [Interacting]
     Active Substance: WARFARIN SODIUM
     Indication: Aortic valve incompetence
     Route: 065
  3. WARFARIN SODIUM [Interacting]
     Active Substance: WARFARIN SODIUM
     Indication: Cardiac valve prosthesis user

REACTIONS (2)
  - Spontaneous haematoma [Unknown]
  - Drug interaction [Unknown]
